FAERS Safety Report 16842934 (Version 1)
Quarter: 2019Q3

REPORT INFORMATION
  Report Type: Spontaneous
  Country: US (occurrence: US)
  Receive Date: 20190924
  Receipt Date: 20190924
  Transmission Date: 20191005
  Serious: No
  Sender: FDA-Public Use
  Company Number: US-UNITED THERAPEUTICS-UNT-2019-015711

PATIENT
  Sex: Female

DRUGS (3)
  1. XARELTO [Suspect]
     Active Substance: RIVAROXABAN
     Indication: PULMONARY ARTERIAL HYPERTENSION
  2. ORENITRAM [Suspect]
     Active Substance: TREPROSTINIL
     Indication: PULMONARY ARTERIAL HYPERTENSION
     Dosage: 0.5 MG, BID
     Route: 048
     Dates: start: 20190827
  3. XARELTO [Suspect]
     Active Substance: RIVAROXABAN
     Indication: ANTICOAGULANT THERAPY
     Dosage: (ONCE DAILY)
     Route: 048
     Dates: start: 20190827

REACTIONS (7)
  - Diarrhoea [Not Recovered/Not Resolved]
  - Respiration abnormal [Unknown]
  - Nausea [Unknown]
  - Decreased appetite [Unknown]
  - Product use issue [Unknown]
  - Headache [Not Recovered/Not Resolved]
  - Poor quality sleep [Unknown]

NARRATIVE: CASE EVENT DATE: 2019
